FAERS Safety Report 7304579-1 (Version None)
Quarter: 2011Q1

REPORT INFORMATION
  Report Type: 
  Country: None (occurrence: None)
  Receive Date: 20110222
  Receipt Date: 20110104
  Transmission Date: 20110831
  Serious: Yes (Hospitalization, Other)
  Sender: FDA-Public Use
  Company Number: PHEH2006US03541

PATIENT
  Sex: Male
  Weight: 97.505 kg

DRUGS (21)
  1. ZOCOR [Concomitant]
     Indication: HYPERLIPIDAEMIA
  2. FLUCONAZOLE [Concomitant]
  3. LISINOPRIL [Concomitant]
  4. NEXIUM [Concomitant]
  5. HYDROMORPHONE [Concomitant]
  6. PREVACID [Concomitant]
  7. VALTREX [Concomitant]
  8. VORICONAZOLE [Concomitant]
     Dosage: 200 MG, UNK
  9. SENOKOT                                 /UNK/ [Concomitant]
  10. LIPITOR [Concomitant]
     Dosage: 20 MG, UNK
  11. RANITIDINE [Concomitant]
  12. TYLENOL [Concomitant]
  13. PROTONIX [Concomitant]
  14. LIPITOR [Concomitant]
  15. VINCRISTINE [Concomitant]
  16. BACTRIM [Concomitant]
  17. AMOXICILLIN [Concomitant]
  18. DOXORUBICIN [Concomitant]
  19. ZOMETA [Suspect]
     Indication: METASTASES TO BONE
     Dosage: 4 MG, QMO
     Dates: end: 20041215
  20. WARFARIN SODIUM [Concomitant]
  21. COUMADIN [Concomitant]

REACTIONS (34)
  - TONGUE INJURY [None]
  - ATRIAL FIBRILLATION [None]
  - ARTERIOSCLEROSIS CORONARY ARTERY [None]
  - OSTEORADIONECROSIS [None]
  - ABSCESS JAW [None]
  - OSTEOLYSIS [None]
  - PAIN [None]
  - EDENTULOUS [None]
  - FRACTURE [None]
  - MASS [None]
  - EPISTAXIS [None]
  - VISION BLURRED [None]
  - OSTEONECROSIS OF JAW [None]
  - GLOSSODYNIA [None]
  - DENTAL CARIES [None]
  - LYMPHADENOPATHY [None]
  - OSTEOMYELITIS [None]
  - TRISMUS [None]
  - JAW FRACTURE [None]
  - HAEMORRHAGE [None]
  - GAIT DISTURBANCE [None]
  - WALKING AID USER [None]
  - MASTICATION DISORDER [None]
  - BONE DISORDER [None]
  - PLASMACYTOMA [None]
  - PNEUMOTHORAX [None]
  - CONSTIPATION [None]
  - BONE PAIN [None]
  - WEIGHT DECREASED [None]
  - SUBMANDIBULAR MASS [None]
  - PNEUMONITIS [None]
  - WHEELCHAIR USER [None]
  - SWELLING [None]
  - DYSPNOEA [None]
